FAERS Safety Report 25064047 (Version 1)
Quarter: 2025Q1

REPORT INFORMATION
  Report Type: Spontaneous
  Country: US (occurrence: US)
  Receive Date: 20250311
  Receipt Date: 20250311
  Transmission Date: 20250409
  Serious: No
  Sender: XERIS PHARMACEUTICALS
  Company Number: US-BRIAN CONNER SVP QUALITY AND CHIEF COMPLIANCE OFFICER-2025XER00103

PATIENT
  Sex: Female

DRUGS (1)
  1. GVOKE [Suspect]
     Active Substance: GLUCAGON
     Dates: start: 20250212

REACTIONS (2)
  - Needle issue [Recovered/Resolved]
  - No adverse event [Recovered/Resolved]

NARRATIVE: CASE EVENT DATE: 20250212
